FAERS Safety Report 4903472-9 (Version None)
Quarter: 2006Q1

REPORT INFORMATION
  Report Type: 
  Country: None (occurrence: None)
  Receive Date: 20060203
  Receipt Date: 20060125
  Transmission Date: 20060701
  Serious: Yes (Other)
  Sender: FDA-Public Use
  Company Number: 163-20785-06010496

PATIENT
  Age: 53 Year
  Sex: Female
  Weight: 49.8957 kg

DRUGS (5)
  1. THALOMID [Suspect]
     Indication: MYELODYSPLASTIC SYNDROME
     Dosage: 50 MG, QHS, ORAL
     Route: 048
     Dates: start: 20050601, end: 20060101
  2. MULTIVITAMIN [Concomitant]
  3. IBUPROFEN [Concomitant]
  4. PROCRIT [Concomitant]
  5. DANAZOL [Concomitant]

REACTIONS (4)
  - BLOOD HUMAN CHORIONIC GONADOTROPIN INCREASED [None]
  - HEPATOMEGALY [None]
  - PANCYTOPENIA [None]
  - SPLENOMEGALY [None]
